FAERS Safety Report 7790569-1 (Version None)
Quarter: 2011Q3

REPORT INFORMATION
  Report Type: 
  Country: None (occurrence: None)
  Receive Date: 20110930
  Receipt Date: 20110926
  Transmission Date: 20111222
  Serious: Yes (Death, Hospitalization)
  Sender: FDA-Public Use
  Company Number: RU-SHIRE-ALL1-2011-03586

PATIENT
  Sex: Male
  Weight: 28 kg

DRUGS (8)
  1. ELAPRASE [Suspect]
     Indication: MUCOPOLYSACCHARIDOSIS II
     Dosage: 12 MG, 1X/WEEK
     Route: 041
     Dates: start: 20110817, end: 20110921
  2. ELAPRASE [Suspect]
     Dosage: 12 MG, 1X/WEEK
     Route: 041
     Dates: start: 20110817, end: 20110921
  3. SODIUM PICOSULFATE [Concomitant]
     Indication: PRODUCT USED FOR UNKNOWN INDICATION
     Dosage: 10 GTT, 1X/DAY:QD
     Route: 048
     Dates: end: 20110924
  4. BENZOBARBITAL [Concomitant]
     Indication: PRODUCT USED FOR UNKNOWN INDICATION
     Dosage: 100 MG, 1X/DAY:QD
     Route: 048
     Dates: end: 20110924
  5. VALPROIC ACID [Concomitant]
     Indication: PRODUCT USED FOR UNKNOWN INDICATION
     Dosage: 3 ML, 3X/DAY:TID
     Route: 048
     Dates: end: 20110924
  6. SUPRASTIN [Concomitant]
     Indication: PREMEDICATION
     Dosage: 1.0 ML, UNKNOWN
     Route: 030
  7. PANCREATIN TRIPLE STRENGTH CAP [Concomitant]
     Indication: PRODUCT USED FOR UNKNOWN INDICATION
     Dosage: 10000 IU, OTHER (3-4 TAB/DAY)
     Route: 048
     Dates: end: 20110926
  8. TRIAMTERENE AND HYDROCHLOROTHIAZIDE [Concomitant]
     Indication: PRODUCT USED FOR UNKNOWN INDICATION
     Dosage: 1 DF (12.5 MG/25 MG), 1X/DAY:QD
     Route: 048
     Dates: end: 20110924

REACTIONS (9)
  - DYSPNOEA [None]
  - BRAIN OEDEMA [None]
  - PYREXIA [None]
  - BRONCHITIS [None]
  - PNEUMONIA [None]
  - POISONING [None]
  - RESPIRATORY FAILURE [None]
  - ABDOMINAL PAIN [None]
  - CYANOSIS [None]
